FAERS Safety Report 5009059-4 (Version None)
Quarter: 2006Q2

REPORT INFORMATION
  Report Type: 
  Country: None (occurrence: None)
  Receive Date: 20060404
  Receipt Date: 20051111
  Transmission Date: 20061013
  Serious: No
  Sender: FDA-Public Use
  Company Number: US200511000895

PATIENT
  Age: 21 Year
  Sex: Female

DRUGS (3)
  1. CYMBALTA [Suspect]
     Dosage: 30 MG
  2. MORPHINE SULFATE [Concomitant]
  3. ZOFRAN [Concomitant]

REACTIONS (1)
  - BLISTER [None]
